FAERS Safety Report 9735774 (Version 1)
Quarter: 2013Q4

REPORT INFORMATION
  Report Type: Spontaneous
  Country: US (occurrence: None)
  Receive Date: 20131204
  Receipt Date: 20131204
  Transmission Date: 20140711
  Serious: Yes (Other)
  Sender: FDA-Public Use
  Company Number: US-ZYDUS-002447

PATIENT
  Age: 74 Year
  Sex: Female

DRUGS (2)
  1. RIBAVIRIN [Suspect]
     Indication: CHRONIC HEPATITIS C
     Route: 048
  2. BOCEPREVIR [Suspect]
     Route: 048

REACTIONS (5)
  - Metabolic encephalopathy [None]
  - Electrolyte imbalance [None]
  - Blood sodium decreased [None]
  - Blood chloride decreased [None]
  - Blood glucose increased [None]
